FAERS Safety Report 8463357-0 (Version None)
Quarter: 2012Q2

REPORT INFORMATION
  Report Type: 
  Country: None (occurrence: None)
  Receive Date: 20120625
  Receipt Date: 20120618
  Transmission Date: 20120825
  Serious: Yes (Hospitalization, Other)
  Sender: FDA-Public Use
  Company Number: US-BRISTOL-MYERS SQUIBB COMPANY-16666034

PATIENT
  Age: 58 Year
  Sex: Male
  Weight: 64 kg

DRUGS (2)
  1. TAXOL [Suspect]
     Indication: OESOPHAGEAL SQUAMOUS CELL CARCINOMA
     Dosage: LAST ADMINISTERED DOSE ON 14MAY12 (0 MG).
     Dates: start: 20120430
  2. CISPLATIN [Suspect]
     Indication: OESOPHAGEAL SQUAMOUS CELL CARCINOMA
     Dosage: LAST ADMINISTERED DOSE ON 14MAY12 (0 MG).
     Dates: start: 20120430

REACTIONS (2)
  - ASCITES [None]
  - SYNCOPE [None]
